FAERS Safety Report 6492030-3 (Version None)
Quarter: 2009Q4

REPORT INFORMATION
  Report Type: 
  Country: None (occurrence: None)
  Receive Date: 20091208
  Receipt Date: 20091123
  Transmission Date: 20100525
  Serious: Yes (Life-Threatening)
  Sender: FDA-Public Use
  Company Number: 2009003593

PATIENT
  Age: 66 Year
  Sex: Male

DRUGS (7)
  1. ERLOTINIB HYDROCHLORIDE [Suspect]
     Indication: NON-SMALL CELL LUNG CANCER
     Dosage: (QD),ORAL
     Route: 048
     Dates: start: 20091114, end: 20091116
  2. GEMCITABINE [Suspect]
     Indication: NON-SMALL CELL LUNG CANCER
     Dosage: (2000 MG,2X PER 1 MONTH),INTRAVENOUS
     Route: 042
     Dates: start: 20091031
  3. CARBOPLATIN [Suspect]
     Indication: NON-SMALL CELL LUNG CANCER
     Dosage: (500 MG,1X 1 MONTH),INTRAVENOUS
     Route: 042
     Dates: start: 20091031
  4. CODEINE SUL TAB [Concomitant]
  5. ACETAMINOPHEN [Concomitant]
  6. NEURODEX (NEUROBION FOR INJECTION) [Concomitant]
  7. ONDANSETRON [Concomitant]

REACTIONS (5)
  - FEBRILE NEUTROPENIA [None]
  - GASTROINTESTINAL HAEMORRHAGE [None]
  - HAEMOGLOBIN DECREASED [None]
  - PETECHIAE [None]
  - PLATELET COUNT DECREASED [None]
